FAERS Safety Report 15480427 (Version 1)
Quarter: 2018Q4

REPORT INFORMATION
  Report Type: Spontaneous
  Country: FR (occurrence: FR)
  Receive Date: 20181009
  Receipt Date: 20181009
  Transmission Date: 20190205
  Serious: Yes (Hospitalization)
  Sender: FDA-Public Use
  Company Number: FR-ASTRAZENECA-2018SF29513

PATIENT
  Age: 89 Year
  Sex: Female
  Weight: 47 kg

DRUGS (5)
  1. ORGARAN [Suspect]
     Active Substance: DANAPAROID SODIUM
     Indication: MYOCARDIAL INFARCTION
     Route: 042
     Dates: start: 20180805, end: 20180806
  2. PLAVIX [Suspect]
     Active Substance: CLOPIDOGREL BISULFATE
     Indication: CORONARY ARTERY DISEASE
     Route: 048
     Dates: end: 20180804
  3. BRILIQUE [Suspect]
     Active Substance: TICAGRELOR
     Indication: MYOCARDIAL INFARCTION
     Route: 048
     Dates: start: 20180805, end: 20180807
  4. KARDEGIC [Suspect]
     Active Substance: ASPIRIN DL-LYSINE
     Indication: CORONARY ARTERY DISEASE
     Route: 048
  5. ASPEGIC (ACETYLSALICYLATE LYSINE, GLYCINE) [Suspect]
     Active Substance: ASPIRIN DL-LYSINE\GLYCINE
     Indication: MYOCARDIAL INFARCTION
     Dosage: 500.0MG ONCE/SINGLE ADMINISTRATION
     Route: 042
     Dates: start: 20180805, end: 20180805

REACTIONS (2)
  - Rectal haemorrhage [Recovered/Resolved]
  - Anaemia [Recovered/Resolved]

NARRATIVE: CASE EVENT DATE: 20180806
